FAERS Safety Report 9729400 (Version 1)
Quarter: 2013Q4

REPORT INFORMATION
  Report Type: Spontaneous
  Country: US (occurrence: US)
  Receive Date: 20131204
  Receipt Date: 20131204
  Transmission Date: 20140711
  Serious: Yes (Other)
  Sender: FDA-Public Use
  Company Number: PHHY2013US137147

PATIENT
  Age: 57 Year
  Sex: Male

DRUGS (3)
  1. OXALIPLATIN [Suspect]
     Dates: start: 201204, end: 201209
  2. 5-FLUOROURACIL [Suspect]
     Dates: start: 201204, end: 201209
  3. FOLINIC ACID [Suspect]
     Dates: start: 201204, end: 201209

REACTIONS (8)
  - Arteriovenous fistula [Unknown]
  - Abdominal pain [Unknown]
  - Liver function test abnormal [Unknown]
  - Hepatic atrophy [Unknown]
  - Vasodilatation [Unknown]
  - Splenomegaly [Unknown]
  - Varices oesophageal [Unknown]
  - Portal hypertension [Unknown]
